FAERS Safety Report 19066061 (Version 1)
Quarter: 2021Q1

REPORT INFORMATION
  Report Type: Spontaneous
  Country: CA (occurrence: CA)
  Receive Date: 20210327
  Receipt Date: 20210327
  Transmission Date: 20210420
  Serious: Yes (Other)
  Sender: FDA-Public Use
  Company Number: CA-IPSEN BIOPHARMACEUTICALS, INC.-2021-07877

PATIENT
  Age: 28 Year
  Sex: Female

DRUGS (4)
  1. LORAZEPAM. [Concomitant]
     Active Substance: LORAZEPAM
  2. DYSPORT [Suspect]
     Active Substance: ABOBOTULINUMTOXINA
     Indication: PANIC ATTACK
     Dosage: 29 IU
     Route: 030
  3. DYSPORT [Suspect]
     Active Substance: ABOBOTULINUMTOXINA
     Indication: ANXIETY
  4. DYSPORT [Suspect]
     Active Substance: ABOBOTULINUMTOXINA
     Indication: OFF LABEL USE

REACTIONS (17)
  - Diarrhoea [Unknown]
  - Eyelid irritation [Unknown]
  - Vision blurred [Unknown]
  - Weight decreased [Unknown]
  - Off label use [Unknown]
  - Headache [Unknown]
  - Musculoskeletal stiffness [Unknown]
  - Panic attack [Unknown]
  - Tremor [Unknown]
  - Heart rate increased [Unknown]
  - Limb discomfort [Unknown]
  - Tinnitus [Unknown]
  - Muscular weakness [Unknown]
  - Anxiety [Unknown]
  - Decreased appetite [Unknown]
  - Malaise [Unknown]
  - Fatigue [Unknown]
